FAERS Safety Report 7787011-3 (Version None)
Quarter: 2011Q3

REPORT INFORMATION
  Report Type: 
  Country: None (occurrence: None)
  Receive Date: 20110929
  Receipt Date: 20110927
  Transmission Date: 20111222
  Serious: Yes (Hospitalization)
  Sender: FDA-Public Use
  Company Number: CA-ABBOTT-11P-028-0840176-00

PATIENT
  Sex: Female
  Weight: 97.61 kg

DRUGS (7)
  1. HYDROCORTISONE [Suspect]
     Indication: ABSCESS INTESTINAL
     Route: 048
     Dates: start: 20110506
  2. ELAVIL [Concomitant]
     Indication: CROHN'S DISEASE
     Route: 048
     Dates: start: 20070101
  3. HUMIRA [Suspect]
     Indication: CROHN'S DISEASE
     Route: 058
     Dates: start: 20090811, end: 20110607
  4. HUMIRA [Suspect]
     Route: 058
     Dates: start: 20110607, end: 20110906
  5. HYDROCORTISONE [Suspect]
     Indication: INFLAMMATION
  6. CALCIUM WITH VITAMIN D [Concomitant]
     Indication: MINERAL SUPPLEMENTATION
     Route: 048
     Dates: start: 20050101
  7. HUMIRA [Suspect]
     Dates: start: 20110516, end: 20110601

REACTIONS (8)
  - CROHN'S DISEASE [None]
  - ABDOMINAL PAIN [None]
  - DRUG INEFFECTIVE [None]
  - GASTROINTESTINAL INFLAMMATION [None]
  - FISTULA [None]
  - ABSCESS INTESTINAL [None]
  - PAIN [None]
  - DRUG DEPENDENCE [None]
